FAERS Safety Report 4701978-9 (Version None)
Quarter: 2005Q2

REPORT INFORMATION
  Report Type: 
  Country: None (occurrence: None)
  Receive Date: 20050628
  Receipt Date: 20050309
  Transmission Date: 20051028
  Serious: Yes (Hospitalization, Disabling)
  Sender: FDA-Public Use
  Company Number: US-MERCK-0503USA01990

PATIENT
  Age: 38 Year
  Sex: Female

DRUGS (4)
  1. VIOXX [Suspect]
     Indication: INFLAMMATION
     Route: 048
     Dates: start: 20030416, end: 20030401
  2. VIOXX [Suspect]
     Route: 048
     Dates: start: 20030401, end: 20030501
  3. VIOXX [Suspect]
     Indication: JOINT SPRAIN
     Route: 048
     Dates: start: 20030416, end: 20030401
  4. VIOXX [Suspect]
     Route: 048
     Dates: start: 20030401, end: 20030501

REACTIONS (11)
  - CHEST PAIN [None]
  - DIARRHOEA [None]
  - FOOT FRACTURE [None]
  - FRACTURE [None]
  - MYOCARDIAL INFARCTION [None]
  - NECK PAIN [None]
  - PAIN IN EXTREMITY [None]
  - PAIN IN JAW [None]
  - SEXUAL DYSFUNCTION [None]
  - STOMACH DISCOMFORT [None]
  - VOMITING [None]
